FAERS Safety Report 7024360-0 (Version None)
Quarter: 2010Q4

REPORT INFORMATION
  Report Type: 
  Country: None (occurrence: None)
  Receive Date: 20101001
  Receipt Date: 20100924
  Transmission Date: 20110411
  Serious: Yes (Hospitalization)
  Sender: FDA-Public Use
  Company Number: DE-JNJFOC-20090300137

PATIENT
  Age: 86 Year
  Sex: Male

DRUGS (8)
  1. TAVANIC [Suspect]
     Indication: URINARY TRACT INFECTION
     Route: 048
  2. ENALAPRIL MALEATE [Suspect]
     Indication: HYPERTENSION
     Route: 048
  3. XIPAMIDE [Suspect]
     Indication: CARDIAC FAILURE
     Route: 048
  4. AMLODIPINE [Interacting]
     Indication: HYPERTENSION
     Route: 048
  5. BISOPROLOL [Interacting]
     Indication: HYPERTENSION
     Route: 048
  6. ASPIRIN [Concomitant]
     Indication: CORONARY ARTERY DISEASE
     Route: 048
  7. CETRIZINE [Concomitant]
     Route: 048
  8. NOVALGIN [Concomitant]
     Indication: CANCER PAIN
     Dosage: 30 DROPS
     Route: 048

REACTIONS (4)
  - BRADYARRHYTHMIA [None]
  - DRUG INTERACTION [None]
  - RENAL FAILURE ACUTE [None]
  - SYNCOPE [None]
